FAERS Safety Report 5912832-9 (Version None)
Quarter: 2008Q4

REPORT INFORMATION
  Report Type: 
  Country: None (occurrence: None)
  Receive Date: 20081006
  Receipt Date: 20080924
  Transmission Date: 20090506
  Serious: Yes (Other)
  Sender: FDA-Public Use
  Company Number: 2008AP002100

PATIENT
  Age: 61 Year
  Sex: Male

DRUGS (8)
  1. DOXAZOSIN MESYLATE [Suspect]
     Indication: MICTURITION URGENCY
     Dosage: 1 MG;TAB;PO;1X; 0.5 MG;TAB;PO;1X
     Route: 048
     Dates: start: 20080812, end: 20080812
  2. DOXAZOSIN MESYLATE [Suspect]
     Indication: PROSTATIC DISORDER
     Dosage: 1 MG;TAB;PO;1X; 0.5 MG;TAB;PO;1X
     Route: 048
     Dates: start: 20080812, end: 20080812
  3. DOXAZOSIN MESYLATE [Suspect]
     Indication: MICTURITION URGENCY
     Dosage: 1 MG;TAB;PO;1X; 0.5 MG;TAB;PO;1X
     Route: 048
     Dates: start: 20080812, end: 20080813
  4. DOXAZOSIN MESYLATE [Suspect]
     Indication: PROSTATIC DISORDER
     Dosage: 1 MG;TAB;PO;1X; 0.5 MG;TAB;PO;1X
     Route: 048
     Dates: start: 20080812, end: 20080813
  5. DOXAZOSIN MESYLATE [Suspect]
     Indication: MICTURITION URGENCY
     Dosage: 1 MG;TAB;PO;1X; 0.5 MG;TAB;PO;1X
     Route: 048
     Dates: start: 20080813, end: 20080813
  6. DOXAZOSIN MESYLATE [Suspect]
     Indication: PROSTATIC DISORDER
     Dosage: 1 MG;TAB;PO;1X; 0.5 MG;TAB;PO;1X
     Route: 048
     Dates: start: 20080813, end: 20080813
  7. SIMVASTATIN [Concomitant]
  8. ACETYLSALICYLIC ACID SRT [Concomitant]

REACTIONS (11)
  - ANOREXIA [None]
  - ASTHENIA [None]
  - GLOSSODYNIA [None]
  - HYPERAESTHESIA [None]
  - MASTICATION DISORDER [None]
  - ORAL PAIN [None]
  - PYREXIA [None]
  - RASH [None]
  - SKIN EXFOLIATION [None]
  - SYNCOPE [None]
  - TENDERNESS [None]
